FAERS Safety Report 5920535-X (Version None)
Quarter: 2008Q4

REPORT INFORMATION
  Report Type: 
  Country: None (occurrence: None)
  Receive Date: 20081015
  Receipt Date: 20081015
  Transmission Date: 20090506
  Serious: No
  Sender: FDA-Public Use
  Company Number: None

PATIENT
  Sex: Male

DRUGS (2)
  1. PEGASYS [Suspect]
  2. RIBAVIRIN [Suspect]

REACTIONS (19)
  - ANAEMIA [None]
  - ANGER [None]
  - CEREBRAL DISORDER [None]
  - COMA [None]
  - CRYING [None]
  - DEPRESSION [None]
  - DYSARTHRIA [None]
  - FATIGUE [None]
  - FEELING ABNORMAL [None]
  - ILL-DEFINED DISORDER [None]
  - IMPAIRED DRIVING ABILITY [None]
  - INFECTION [None]
  - MALAISE [None]
  - PERSONALITY CHANGE [None]
  - PNEUMONIA [None]
  - SEXUAL DYSFUNCTION [None]
  - SLEEP DISORDER [None]
  - THINKING ABNORMAL [None]
  - VISUAL IMPAIRMENT [None]
